FAERS Safety Report 7133870-7 (Version None)
Quarter: 2010Q4

REPORT INFORMATION
  Report Type: 
  Country: None (occurrence: None)
  Receive Date: 20101203
  Receipt Date: 20101124
  Transmission Date: 20110411
  Serious: Yes (Hospitalization, Other)
  Sender: FDA-Public Use
  Company Number: JP-PFIZER INC-2010138293

PATIENT
  Age: 76 Year
  Sex: Female

DRUGS (6)
  1. LYRICA [Suspect]
     Indication: CERVICOBRACHIAL SYNDROME
     Dosage: 75 MG, 2X/DAY
     Route: 048
     Dates: start: 20101029
  2. LYRICA [Suspect]
     Indication: BACK PAIN
  3. LYRICA [Suspect]
     Indication: MUSCULOSKELETAL STIFFNESS
  4. LOXONIN [Concomitant]
     Indication: CERVICOBRACHIAL SYNDROME
     Dosage: UNK
     Dates: end: 20101028
  5. IMIDAPRIL HYDROCHLORIDE [Concomitant]
     Dosage: 5 MG, DAILY
     Route: 048
  6. PLETAL [Concomitant]
     Dosage: 100 MG, DAILY
     Route: 048

REACTIONS (3)
  - ARRHYTHMIA [None]
  - DIZZINESS [None]
  - LOSS OF CONSCIOUSNESS [None]
